FAERS Safety Report 8130925-5 (Version None)
Quarter: 2012Q1

REPORT INFORMATION
  Report Type: 
  Country: None (occurrence: None)
  Receive Date: 20120213
  Receipt Date: 20120208
  Transmission Date: 20120608
  Serious: Yes (Other)
  Sender: FDA-Public Use
  Company Number: US-PFIZER INC-2012035560

PATIENT
  Age: 61 Year
  Sex: Male
  Weight: 57.143 kg

DRUGS (4)
  1. GABAPENTIN [Concomitant]
     Indication: IRRITABILITY
  2. SOLU-MEDROL [Suspect]
     Indication: NASOPHARYNGITIS
     Dosage: 125 MG, UNK
     Dates: start: 20120207
  3. GABAPENTIN [Concomitant]
     Indication: PAIN
     Dosage: 600 MG, 2X/DAY
     Route: 048
  4. GABAPENTIN [Concomitant]
     Indication: RESTLESSNESS

REACTIONS (1)
  - HYPERSENSITIVITY [None]
